FAERS Safety Report 9596243 (Version 5)
Quarter: 2013Q4

REPORT INFORMATION
  Report Type: Spontaneous
  Country: AR (occurrence: AR)
  Receive Date: 20131004
  Receipt Date: 20131118
  Transmission Date: 20140711
  Serious: Yes (Hospitalization, Other)
  Sender: FDA-Public Use
  Company Number: AR-PFIZER INC-2013282155

PATIENT
  Age: 58 Year
  Sex: Male

DRUGS (3)
  1. SUTENT [Suspect]
     Indication: METASTATIC RENAL CELL CARCINOMA
     Dosage: 50 MG, 1X/DAY
     Route: 048
     Dates: start: 20130830, end: 20130925
  2. TRAMADOL [Concomitant]
     Dosage: UNK
     Route: 048
     Dates: start: 201309
  3. DICLOFENAC [Concomitant]
     Dosage: UNK
     Route: 048
     Dates: start: 201309

REACTIONS (5)
  - Intestinal obstruction [Recovering/Resolving]
  - Peritonitis [Recovering/Resolving]
  - Intestinal perforation [Recovering/Resolving]
  - Asthenia [Recovering/Resolving]
  - Weight decreased [Recovering/Resolving]
